FAERS Safety Report 23468342 (Version 1)
Quarter: 2024Q1

REPORT INFORMATION
  Report Type: Report from Study
  Country: US (occurrence: US)
  Receive Date: 20240202
  Receipt Date: 20240202
  Transmission Date: 20240410
  Serious: Yes (Other)
  Sender: FDA-Public Use
  Company Number: US-ABBVIE-5615827

PATIENT
  Age: 28 Year
  Sex: Female

DRUGS (1)
  1. ORILISSA [Suspect]
     Active Substance: ELAGOLIX SODIUM
     Indication: Product used for unknown indication
     Route: 048
     Dates: start: 20210601

REACTIONS (4)
  - Salpingo-oophorectomy unilateral [Not Recovered/Not Resolved]
  - Uterine dilation and curettage [Not Recovered/Not Resolved]
  - Maternal exposure during pregnancy [Unknown]
  - Live birth [Unknown]

NARRATIVE: CASE EVENT DATE: 20240124
